FAERS Safety Report 5370193-0 (Version None)
Quarter: 2007Q2

REPORT INFORMATION
  Report Type: 
  Country: None (occurrence: None)
  Receive Date: 20070614
  Receipt Date: 20070426
  Transmission Date: 20071010
  Serious: No
  Sender: FDA-Public Use
  Company Number: BDI-009471

PATIENT
  Age: 62 Year
  Sex: Female
  Weight: 90.9 kg

DRUGS (3)
  1. MULTIHANCE [Suspect]
     Indication: MUSCULOSKELETAL PAIN
     Dosage: 20 ML ONCE IV
     Route: 042
     Dates: start: 20070426, end: 20070426
  2. MULTIHANCE [Suspect]
     Indication: NECK PAIN
     Dosage: 20 ML ONCE IV
     Route: 042
     Dates: start: 20070426, end: 20070426
  3. MULTIHANCE [Suspect]
     Indication: NUCLEAR MAGNETIC RESONANCE IMAGING
     Dosage: 20 ML ONCE IV
     Route: 042
     Dates: start: 20070426, end: 20070426

REACTIONS (1)
  - HYPERSENSITIVITY [None]
